FAERS Safety Report 7589948-7 (Version None)
Quarter: 2011Q3

REPORT INFORMATION
  Report Type: 
  Country: None (occurrence: None)
  Receive Date: 20110705
  Receipt Date: 20110614
  Transmission Date: 20111222
  Serious: Yes (Death, Hospitalization)
  Sender: FDA-Public Use
  Company Number: A0805505A

PATIENT
  Age: 49 Year
  Sex: Male

DRUGS (8)
  1. LABETALOL HCL [Concomitant]
  2. GLIPIZIDE [Concomitant]
  3. BEXTRA [Concomitant]
  4. AVANDIA [Suspect]
     Indication: DIABETES MELLITUS
     Dosage: 4MG PER DAY
     Route: 048
     Dates: end: 20060330
  5. PRAVASTATIN [Concomitant]
  6. FENOFIBRATE [Concomitant]
  7. INSULIN [Concomitant]
  8. DIOVAN HCT [Concomitant]

REACTIONS (3)
  - CORONARY ARTERY DISEASE [None]
  - DEATH [None]
  - MYOCARDIAL INFARCTION [None]
